FAERS Safety Report 8446994-9 (Version None)
Quarter: 2012Q2

REPORT INFORMATION
  Report Type: 
  Country: None (occurrence: None)
  Receive Date: 20120612
  Receipt Date: 20120604
  Transmission Date: 20120825
  Serious: Yes (Death, Other)
  Sender: FDA-Public Use
  Company Number: CN-JNJFOC-20120601008

PATIENT
  Age: 68 Year
  Sex: Male

DRUGS (9)
  1. FELODIPINE (FELODIPINE) SUSTAINED RELEASE TABLETS [Concomitant]
  2. METOPROLOL SUCCINATE [Concomitant]
  3. ATORVASTATIN (ATORVASTATIN) UNSPECIFIED [Concomitant]
  4. DACOGEN [Suspect]
     Indication: MYELODYSPLASTIC SYNDROME
     Dosage: 24 MG, 1 IN 1 DAY, INTRAVENOUS
     Route: 042
     Dates: start: 20120526, end: 20120530
  5. COLONY STIMULATING FACTOR (COLONY STIMULATING FACTORS) UNSPECIFIED [Suspect]
     Indication: MYELODYSPLASTIC SYNDROME
  6. UNKNOWN MEDICATION (ALL OTHER THERAPEUTIC PRODUCTS) UNSPECIFIED [Suspect]
     Indication: MYELODYSPLASTIC SYNDROME
     Dosage: OTHER LEUKOPENIC TREATMENTS UNKNOWN
  7. CYTARABINE [Suspect]
     Indication: MYELODYSPLASTIC SYNDROME
     Dosage: 15 MG, 1 IN 12 HOUR, SUBCUTANEOUS
     Route: 058
     Dates: start: 20120526
  8. ACLARUBICIN (ACLARUBICIN) UNSPECIFIED [Suspect]
     Indication: MYELODYSPLASTIC SYNDROME
     Dosage: 10 MG, 1 IN 1 DAY, INTRAVENOUS
     Route: 042
     Dates: start: 20120526
  9. TRIMETAZIDINE HYDROCHLORIDE (TRIMETAZIDINE [Concomitant]

REACTIONS (11)
  - COUGH [None]
  - PRODUCTIVE COUGH [None]
  - CARDIAC DISORDER [None]
  - MYOCARDIAL INFARCTION [None]
  - HYPERTENSION [None]
  - MYELODYSPLASTIC SYNDROME [None]
  - CARDIAC FAILURE [None]
  - LUNG INFECTION [None]
  - CORONARY ARTERY DISEASE [None]
  - HAEMOPTYSIS [None]
  - RESPIRATORY FAILURE [None]
